FAERS Safety Report 17284527 (Version 5)
Quarter: 2024Q1

REPORT INFORMATION
  Report Type: Spontaneous
  Country: FR (occurrence: FR)
  Receive Date: 20200117
  Receipt Date: 20240319
  Transmission Date: 20240410
  Serious: Yes (Hospitalization, Disabling, Other)
  Sender: FDA-Public Use
  Company Number: FR-MYLANLABS-2019M1118574

PATIENT
  Age: 38 Year
  Sex: Female
  Weight: 58 kg

DRUGS (19)
  1. CYPROTERONE [Suspect]
     Active Substance: CYPROTERONE
     Indication: Hirsutism
     Dosage: UNK
     Route: 065
     Dates: start: 2004, end: 2012
  2. CYPROTERONE [Suspect]
     Active Substance: CYPROTERONE
     Dosage: UNK
     Route: 065
     Dates: start: 2013
  3. CYPROTERONE [Suspect]
     Active Substance: CYPROTERONE
     Dosage: 50 MILLIGRAM
     Route: 065
     Dates: start: 20160806, end: 20161229
  4. CYPROTERONE [Suspect]
     Active Substance: CYPROTERONE
     Dosage: 50 MILLIGRAM
     Route: 065
     Dates: start: 20160620
  5. CYPROTERONE [Suspect]
     Active Substance: CYPROTERONE
     Dosage: 50 MILLIGRAM, (UNTIL 24-NOV-2017)
     Route: 065
     Dates: start: 20150619, end: 20171124
  6. ESTRADIOL [Suspect]
     Active Substance: ESTRADIOL
     Indication: Hirsutism
     Dosage: 1 MILLIGRAM
     Route: 065
     Dates: start: 20160806, end: 20161229
  7. ESTRADIOL [Suspect]
     Active Substance: ESTRADIOL
     Dosage: 1 MILLIGRAM
     Route: 065
     Dates: start: 20160620
  8. ESTRADIOL [Suspect]
     Active Substance: ESTRADIOL
     Dosage: 1 MILLIGRAM FROM D1 TO D20
     Route: 065
  9. NOVORAPID [Suspect]
     Active Substance: INSULIN ASPART
     Indication: Product used for unknown indication
     Dosage: 100U/ML
     Route: 065
     Dates: start: 20160806, end: 20161229
  10. LANTUS [Suspect]
     Active Substance: INSULIN GLARGINE
     Indication: Product used for unknown indication
     Dosage: 100UI/ML
     Route: 065
     Dates: start: 20160806, end: 20161229
  11. CYPROTERONE ACETATE [Suspect]
     Active Substance: CYPROTERONE ACETATE
     Indication: Hirsutism
     Dosage: UNK UNK, QD
     Route: 065
     Dates: start: 200207, end: 20110519
  12. CYPROTERONE ACETATE [Suspect]
     Active Substance: CYPROTERONE ACETATE
     Indication: Folliculitis
     Dosage: 1 DOSAGE FORM (1 TABLET OF ANDROCUR 20 DAYS PER MONTH)
     Route: 065
     Dates: start: 20141212, end: 20160401
  13. CYPROTERONE ACETATE [Suspect]
     Active Substance: CYPROTERONE ACETATE
     Indication: Polycystic ovaries
  14. CYPROTERONE ACETATE [Suspect]
     Active Substance: CYPROTERONE ACETATE
     Indication: Hypertrichosis
  15. CYPROTERONE ACETATE [Suspect]
     Active Substance: CYPROTERONE ACETATE
     Indication: Hyperandrogenism
  16. INSULIN NOS [Concomitant]
     Active Substance: INSULIN NOS
     Indication: Diabetes mellitus
     Dosage: UNK
     Route: 065
  17. ESTRADIOL [Concomitant]
     Active Substance: ESTRADIOL
     Dosage: UNK UNK, BID
     Route: 065
  18. ESTRADIOL [Concomitant]
     Active Substance: ESTRADIOL
     Dosage: PROVAMES 2 MG DURING THE FIRST 20 DAYS OF THE CYCLE
     Route: 065
  19. NUVARING [Concomitant]
     Active Substance: ETHINYL ESTRADIOL\ETONOGESTREL
     Dosage: UNK
     Route: 065

REACTIONS (1)
  - Meningioma [Unknown]

NARRATIVE: CASE EVENT DATE: 20171201
